FAERS Safety Report 4708091-5 (Version None)
Quarter: 2005Q3

REPORT INFORMATION
  Report Type: 
  Country: None (occurrence: None)
  Receive Date: 20050707
  Receipt Date: 20050627
  Transmission Date: 20060218
  Serious: Yes (Other)
  Sender: FDA-Public Use
  Company Number: PHBS2005DE09275

PATIENT
  Age: 63 Year
  Sex: Female

DRUGS (7)
  1. NEORAL [Suspect]
     Indication: HEART TRANSPLANT
     Route: 065
  2. PREDNISOLONE [Suspect]
     Indication: HEART TRANSPLANT
     Dosage: 1 MG/KG/D
     Route: 065
  3. FLUVASTATIN SODIUM [Suspect]
     Indication: HYPERCHOLESTEROLAEMIA
     Dosage: 40 MG/D
     Route: 065
  4. FLUVASTATIN SODIUM [Suspect]
     Dosage: 80 MG/D
     Route: 065
  5. ATGAM [Concomitant]
  6. CERTICAN [Suspect]
     Indication: HEART TRANSPLANT
     Dosage: 0.75 MG, BID
     Dates: start: 20040601
  7. CERTICAN [Suspect]
     Dosage: 1.25 MG/D

REACTIONS (3)
  - BLOOD CHOLESTEROL INCREASED [None]
  - BLOOD CREATININE INCREASED [None]
  - HEART TRANSPLANT REJECTION [None]
